FAERS Safety Report 9294209 (Version 2)
Quarter: 2013Q2

REPORT INFORMATION
  Report Type: Spontaneous
  Country: US (occurrence: US)
  Receive Date: 20130516
  Receipt Date: 20130603
  Transmission Date: 20140414
  Serious: Yes (Other)
  Sender: FDA-Public Use
  Company Number: US-GILEAD-2013-0073213

PATIENT
  Age: 85 Year
  Sex: Female

DRUGS (3)
  1. LETAIRIS [Suspect]
     Indication: PULMONARY HYPERTENSION
     Dosage: 5 MG, QD
     Route: 048
     Dates: start: 20130402
  2. LETAIRIS [Suspect]
     Indication: PNEUMONIA
  3. ADCIRCA [Concomitant]

REACTIONS (4)
  - Pneumonia [Unknown]
  - Wheezing [Unknown]
  - Hyponatraemia [Unknown]
  - Dyspnoea [Unknown]
